FAERS Safety Report 21826260 (Version 1)
Quarter: 2023Q1

REPORT INFORMATION
  Report Type: Spontaneous
  Country: US (occurrence: US)
  Receive Date: 20230106
  Receipt Date: 20230106
  Transmission Date: 20230418
  Serious: No
  Sender: FDA-Public Use
  Company Number: US-GLAXOSMITHKLINE-USCH2022AMR053221

PATIENT
  Age: 70 Year
  Sex: Female
  Weight: 51.26 kg

DRUGS (4)
  1. ADVIL [Suspect]
     Active Substance: IBUPROFEN
     Indication: Pain
     Dosage: UNK, ONE TIME AS NEEDED
     Dates: start: 20221229
  2. ADVIL [Suspect]
     Active Substance: IBUPROFEN
     Indication: Oropharyngeal pain
  3. PAXLOVID [Suspect]
     Active Substance: NIRMATRELVIR\RITONAVIR
     Indication: COVID-19
     Dosage: 3 DF, BID
     Route: 048
     Dates: start: 20221229
  4. ZINC [Suspect]
     Active Substance: ZINC
     Indication: Product used for unknown indication
     Dosage: UNK

REACTIONS (3)
  - Dizziness [Unknown]
  - Dysstasia [Unknown]
  - Product use in unapproved indication [Unknown]

NARRATIVE: CASE EVENT DATE: 20221229
